FAERS Safety Report 20826394 (Version 2)
Quarter: 2022Q4

REPORT INFORMATION
  Report Type: Spontaneous
  Country: US (occurrence: US)
  Receive Date: 20220513
  Receipt Date: 20221123
  Transmission Date: 20230113
  Serious: No
  Sender: FDA-Public Use
  Company Number: US-BEH-2022145241

PATIENT
  Age: 56 Year
  Sex: Female

DRUGS (2)
  1. HAEGARDA [Suspect]
     Active Substance: HUMAN C1-ESTERASE INHIBITOR
     Indication: Hereditary angioedema
     Dosage: 3000 INTERNATIONAL UNIT, QOD
     Route: 058
     Dates: start: 20210121
  2. HAEGARDA [Suspect]
     Active Substance: HUMAN C1-ESTERASE INHIBITOR
     Indication: Prophylaxis
     Dosage: 3000 INTERNATIONAL UNIT, QOD
     Route: 058
     Dates: start: 20210914

REACTIONS (2)
  - Infusion site scar [Unknown]
  - Tooth restoration [Unknown]

NARRATIVE: CASE EVENT DATE: 20221103
